FAERS Safety Report 7776230-8 (Version None)
Quarter: 2011Q3

REPORT INFORMATION
  Report Type: 
  Country: None (occurrence: None)
  Receive Date: 20110926
  Receipt Date: 20110920
  Transmission Date: 20111222
  Serious: No
  Sender: FDA-Public Use
  Company Number: US-PFIZER INC-2011223540

PATIENT
  Sex: Female
  Weight: 63 kg

DRUGS (1)
  1. LYRICA [Suspect]
     Indication: FIBROMYALGIA
     Dosage: 25 MG, 1X/DAY
     Route: 048
     Dates: start: 20110916

REACTIONS (4)
  - MALAISE [None]
  - HEADACHE [None]
  - SOMNOLENCE [None]
  - DYSPEPSIA [None]
